FAERS Safety Report 8456569-3 (Version None)
Quarter: 2012Q2

REPORT INFORMATION
  Report Type: 
  Country: None (occurrence: None)
  Receive Date: 20120621
  Receipt Date: 20120613
  Transmission Date: 20120825
  Serious: Yes (Hospitalization, Other)
  Sender: FDA-Public Use
  Company Number: BR-ABBOTT-10P-020-0689050-00

PATIENT
  Sex: Female
  Weight: 34 kg

DRUGS (12)
  1. DIPIVEFRINE [Concomitant]
     Indication: EYE LUBRICATION THERAPY
     Dates: start: 20100601
  2. NIFEDIPINE [Concomitant]
     Indication: BLOOD PRESSURE ABNORMAL
     Route: 048
  3. HUMIRA [Suspect]
     Indication: RHEUMATOID ARTHRITIS
     Route: 058
  4. UNKNOWN DRUG [Concomitant]
     Indication: EYE PAIN
     Route: 047
  5. TIMOLOL MALEATE [Concomitant]
     Indication: EYE LUBRICATION THERAPY
     Dates: start: 20060101
  6. DEXTRAN 70 [Concomitant]
     Indication: EYE LUBRICATION THERAPY
     Dates: start: 20060101
  7. CALCIFLEX [Concomitant]
     Indication: OSTEOPOROSIS
     Dates: start: 20110201
  8. FRESH TEARS [Concomitant]
     Indication: EYE LUBRICATION THERAPY
  9. RISEDRONATE SODIUM [Concomitant]
     Indication: RHEUMATOID ARTHRITIS
     Route: 048
  10. REDRONATO [Concomitant]
     Indication: MUSCULOSKELETAL PAIN
     Route: 048
  11. UNKNOWN [Concomitant]
     Indication: HYPERTENSION
     Route: 048
  12. EPITEGEL [Concomitant]
     Indication: EYE LUBRICATION THERAPY
     Dates: start: 20100601

REACTIONS (13)
  - DIABETES MELLITUS [None]
  - BLOOD GLUCOSE DECREASED [None]
  - ORAL DISORDER [None]
  - EMPHYSEMA [None]
  - DYSPHAGIA [None]
  - INJECTION SITE HAEMATOMA [None]
  - URINARY TRACT INFECTION [None]
  - LOSS OF CONSCIOUSNESS [None]
  - INJECTION SITE ERYTHEMA [None]
  - BLOOD GLUCOSE INCREASED [None]
  - HYPOTENSION [None]
  - INJECTION SITE VESICLES [None]
  - INJECTION SITE SWELLING [None]
